FAERS Safety Report 4390568-6 (Version None)
Quarter: 2004Q2

REPORT INFORMATION
  Report Type: 
  Country: None (occurrence: None)
  Receive Date: 20040630
  Receipt Date: 20040614
  Transmission Date: 20050107
  Serious: Yes (Death, Hospitalization)
  Sender: FDA-Public Use
  Company Number: 207094

PATIENT
  Age: 45 Year
  Sex: Female

DRUGS (4)
  1. MABTHERA(RITUXIMAB, RITUXIMAB) CONC FOR SOLUTION FOR INFUSION, 100 MG [Suspect]
     Indication: NON-HODGKIN'S LYMPHOMA
     Dosage: 500 MG, 1 MONTH, INTRAVENOUS
     Route: 042
     Dates: start: 20020923, end: 20030519
  2. VINCRISTINE [Concomitant]
  3. EPIRUBICIN [Concomitant]
  4. CYCLOPHOSPHAMIDE [Concomitant]

REACTIONS (8)
  - ABDOMINAL DISTENSION [None]
  - ANOREXIA [None]
  - ASTHENIA [None]
  - BODY TEMPERATURE INCREASED [None]
  - COMA HEPATIC [None]
  - HAEMATOCRIT DECREASED [None]
  - HAEMOGLOBIN DECREASED [None]
  - HEPATITIS B [None]
